FAERS Safety Report 11138419 (Version 1)
Quarter: 2015Q2

REPORT INFORMATION
  Report Type: Spontaneous
  Country: GB (occurrence: GB)
  Receive Date: 20150527
  Receipt Date: 20150527
  Transmission Date: 20150821
  Serious: Yes (Death, Other)
  Sender: FDA-Public Use
  Company Number: GB-CIPLA LTD.-2015GB03966

PATIENT

DRUGS (7)
  1. DEXAMETHASONE. [Concomitant]
     Active Substance: DEXAMETHASONE
  2. CAPEGARD [Suspect]
     Active Substance: CAPECITABINE
     Indication: OVARIAN CANCER
     Dosage: 650 MG/M2, BID, FOR 14 DAYS STARTING ON THE EVENING OF DAY 1, EVERY 3 WEEKS FOR A MAXIMUMOF 6 CYCLES
     Route: 048
  3. CARBOPLATIN. [Suspect]
     Active Substance: CARBOPLATIN
     Indication: OVARIAN CANCER
     Route: 065
  4. PACLITAXEL. [Suspect]
     Active Substance: PACLITAXEL
     Indication: OVARIAN CANCER
     Route: 065
  5. EPIRUBICIN [Suspect]
     Active Substance: EPIRUBICIN
     Indication: OVARIAN CANCER
     Dosage: 50 MG/M2, UNK, ON DAY 1, EVERY 3 WEEKS FOR A MAXIMUMOF 6 CYCLES
     Route: 065
  6. ONDANSENTRON [Concomitant]
  7. CISPLATIN. [Suspect]
     Active Substance: CISPLATIN
     Indication: OVARIAN CANCER
     Dosage: 60 MG/M2, UNK, 3 HOUR INFUSION, EVERY 3 WEEKS FOR A MAXIMUMOF 6 CYCLES

REACTIONS (3)
  - Death [Fatal]
  - Disease progression [Unknown]
  - Drug resistance [Unknown]
